FAERS Safety Report 22345043 (Version 2)
Quarter: 2023Q2

REPORT INFORMATION
  Report Type: Spontaneous
  Country: US (occurrence: US)
  Receive Date: 20230519
  Receipt Date: 20230530
  Transmission Date: 20230722
  Serious: No
  Sender: FDA-Public Use
  Company Number: US-AGIOS-2305US03365

PATIENT
  Sex: Male

DRUGS (3)
  1. PYRUKYND [Suspect]
     Active Substance: MITAPIVAT
     Indication: Product used for unknown indication
     Dosage: 5 MILLIGRAM, BID
     Route: 065
     Dates: start: 202209
  2. PYRUKYND [Suspect]
     Active Substance: MITAPIVAT
     Dosage: 20 MILLIGRAM, BID
     Route: 065
     Dates: start: 202304
  3. PYRUKYND [Suspect]
     Active Substance: MITAPIVAT
     Dosage: 20 MILLIGRAM, QD
     Route: 048

REACTIONS (4)
  - Serum ferritin increased [Unknown]
  - Muscle spasms [Unknown]
  - Asthenia [Unknown]
  - Tremor [Unknown]
